FAERS Safety Report 10730878 (Version 1)
Quarter: 2015Q1

REPORT INFORMATION
  Report Type: Report from Study
  Country: BR (occurrence: BR)
  Receive Date: 20150122
  Receipt Date: 20150122
  Transmission Date: 20150721
  Serious: Yes (Death, Hospitalization)
  Sender: FDA-Public Use
  Company Number: PHHY2015BR008556

PATIENT
  Sex: Female

DRUGS (3)
  1. CARDIAZEM//DILTIAZEM HYDROCHLORIDE [Concomitant]
     Indication: CARDIAC DISORDER
     Dosage: UNK UKN, UNK
     Route: 065
  2. EXELON [Suspect]
     Active Substance: RIVASTIGMINE TARTRATE
     Indication: MEMORY IMPAIRMENT
     Dosage: 1 DF, BID
     Route: 065
  3. SELOZOK [Concomitant]
     Active Substance: METOPROLOL SUCCINATE
     Indication: PRODUCT USED FOR UNKNOWN INDICATION
     Dosage: 2 DF, BID
     Route: 065

REACTIONS (2)
  - Pneumonia [Fatal]
  - Product use issue [Unknown]
